FAERS Safety Report 5083623-9 (Version None)
Quarter: 2006Q3

REPORT INFORMATION
  Report Type: 
  Country: None (occurrence: None)
  Receive Date: 20060818
  Receipt Date: 20060629
  Transmission Date: 20061208
  Serious: Yes (Hospitalization)
  Sender: FDA-Public Use
  Company Number: FR-JNJFOC-20060803675

PATIENT
  Age: 63 Year
  Sex: Male

DRUGS (11)
  1. IXPRIM [Suspect]
     Indication: DRUG USE FOR UNKNOWN INDICATION
     Route: 048
  2. PYOSTACINE [Suspect]
     Indication: DRUG USE FOR UNKNOWN INDICATION
     Route: 048
  3. ADVIL [Suspect]
     Indication: DRUG USE FOR UNKNOWN INDICATION
     Route: 048
  4. AMARYL [Concomitant]
     Route: 048
  5. FRAXODI [Concomitant]
     Indication: DRUG USE FOR UNKNOWN INDICATION
     Route: 058
  6. KORETIC [Concomitant]
  7. PHYSIOTENS [Concomitant]
     Route: 048
  8. LIPANTHYL [Concomitant]
     Route: 048
  9. MAXEPA [Concomitant]
     Route: 048
  10. PRAVASTATIN [Concomitant]
     Route: 048
  11. ALLOPURINOL [Concomitant]
     Route: 048

REACTIONS (4)
  - ERYTHEMA [None]
  - JOINT SWELLING [None]
  - JOINT WARMTH [None]
  - RENAL FAILURE ACUTE [None]
